FAERS Safety Report 5386962-7 (Version None)
Quarter: 2007Q3

REPORT INFORMATION
  Report Type: 
  Country: None (occurrence: None)
  Receive Date: 20070713
  Receipt Date: 20070703
  Transmission Date: 20080115
  Serious: Yes (Other)
  Sender: FDA-Public Use
  Company Number: US-PFIZER INC-2007055122

PATIENT
  Sex: Female
  Weight: 61.818 kg

DRUGS (2)
  1. CELEBREX [Suspect]
     Indication: OSTEOARTHRITIS
  2. ACTONEL [Concomitant]

REACTIONS (3)
  - ACCIDENT [None]
  - SUBDURAL HAEMATOMA [None]
  - URTICARIA [None]
